FAERS Safety Report 7574999-9 (Version None)
Quarter: 2011Q2

REPORT INFORMATION
  Report Type: 
  Country: None (occurrence: None)
  Receive Date: 20110627
  Receipt Date: 20110601
  Transmission Date: 20111010
  Serious: Yes (Other)
  Sender: FDA-Public Use
  Company Number: US-BAYER-2011-023922

PATIENT
  Age: 15 Year
  Sex: Female

DRUGS (2)
  1. YAZ [Suspect]
     Indication: PREMENSTRUAL SYNDROME
     Dosage: UNK
     Route: 048
     Dates: start: 20100501, end: 20100701
  2. YAZ [Suspect]
     Indication: POLYCYSTIC OVARIES

REACTIONS (3)
  - DEEP VEIN THROMBOSIS [None]
  - INJURY [None]
  - PAIN [None]
